FAERS Safety Report 26139513 (Version 2)
Quarter: 2025Q4

REPORT INFORMATION
  Report Type: Spontaneous
  Country: GB (occurrence: GB)
  Receive Date: 20251210
  Receipt Date: 20251230
  Transmission Date: 20260118
  Serious: Yes (Congenital Anomaly, Other)
  Sender: DR REDDYS
  Company Number: None

PATIENT

DRUGS (18)
  1. DULOXETINE [Suspect]
     Active Substance: DULOXETINE
     Indication: Depression
     Dosage: 60MG DAILY
     Route: 064
     Dates: start: 20230223
  2. OMEPRAZOLE [Suspect]
     Active Substance: OMEPRAZOLE
     Indication: Product used for unknown indication
     Dosage: 40MG DAILY
     Route: 064
     Dates: start: 20240731
  3. NITROFURANTOIN [Suspect]
     Active Substance: NITROFURANTOIN
     Indication: Product used for unknown indication
     Dosage: IN 1ST TRIMESTER ONLY
  4. POLYETHYLENE GLYCOLS [Suspect]
     Active Substance: POLYETHYLENE GLYCOLS
     Indication: Constipation
     Dosage: 1-2 SACHETS DAILY
     Route: 064
     Dates: start: 20250409
  5. LACTULOSE [Suspect]
     Active Substance: LACTULOSE
     Indication: Constipation
     Dosage: 2.5ML TWICE A DAY
     Route: 064
     Dates: start: 20250409
  6. BECLOMETHASONE DIPROPIONATE [Suspect]
     Active Substance: BECLOMETHASONE DIPROPIONATE
     Indication: Asthma
     Dosage: 200MICROGRAMS TWICE A DAY
     Dates: start: 20240528
  7. MIRTAZAPINE [Suspect]
     Active Substance: MIRTAZAPINE
     Indication: Depression
     Dosage: 45MG AT NIGHT
     Route: 064
     Dates: start: 20220615
  8. QUETIAPINE [Suspect]
     Active Substance: QUETIAPINE
     Indication: Anxiety
     Dosage: 50MG AT NIGHT
     Route: 064
     Dates: start: 20150120
  9. CHOLECALCIFEROL [Suspect]
     Active Substance: CHOLECALCIFEROL
     Indication: Pregnancy
     Dosage: 400UNITS ONCE DAILY
     Dates: start: 20250320
  10. ENOXAPARIN SODIUM [Suspect]
     Active Substance: ENOXAPARIN SODIUM
     Indication: Pregnancy with advanced maternal age
     Dosage: 40MG DAILY
     Route: 064
     Dates: start: 20250514
  11. DISODIUM HYDROGEN CITRATE\SODIUM LAURYL SULFATE [Suspect]
     Active Substance: DISODIUM HYDROGEN CITRATE\SODIUM LAURYL SULFATE
     Indication: Constipation
     Dosage: 1 AS NEEDED RECTALLY
     Route: 064
     Dates: start: 20250807
  12. SENNA [Suspect]
     Active Substance: SENNOSIDES
     Indication: Constipation
     Dosage: 15MG AT NIGHT WHEN NEEDED
     Route: 064
     Dates: start: 20240731
  13. ALBUTEROL [Suspect]
     Active Substance: ALBUTEROL
     Indication: Asthma
     Dosage: 2 PUFFS PRN
     Route: 064
     Dates: start: 20240528
  14. AMOXICILLIN TRIHYDRATE [Suspect]
     Active Substance: AMOXICILLIN
     Indication: Upper respiratory tract infection
     Dosage: 1 THREE TIMES A DAY  FOR 1 WEEK
     Route: 064
     Dates: start: 20250925, end: 20251002
  15. CLOTRIMAZOLE [Suspect]
     Active Substance: CLOTRIMAZOLE
     Indication: Vulvovaginal candidiasis
     Dosage: 200MG AT NIGHT FOR 6 NIGHTS
     Route: 064
     Dates: start: 20250804, end: 20250811
  16. ACETAMINOPHEN [Suspect]
     Active Substance: ACETAMINOPHEN
     Indication: Product used for unknown indication
     Dosage: IN 1ST TRIMESTER ONLY
  17. BECLOMETHASONE DIPROPIONATE\BORNEOL\CAMPHOR (SYNTHETIC)\MENTHOL\METHYL [Suspect]
     Active Substance: BECLOMETHASONE DIPROPIONATE\BORNEOL\CAMPHOR (SYNTHETIC)\MENTHOL\METHYL SALICYLATE\THYMOL
     Indication: Product used for unknown indication
     Dosage: ((DOSE // DAILY DOSE) : X 200 MICROGRAM IN // MICROGRAM, BID
     Route: 064
     Dates: start: 20250528
  18. FOLIC ACID [Concomitant]
     Active Substance: FOLIC ACID
     Indication: Vitamin supplementation
     Route: 064
     Dates: start: 20250804, end: 20250811

REACTIONS (2)
  - Cleft palate [Not Recovered/Not Resolved]
  - Foetal exposure during pregnancy [Unknown]

NARRATIVE: CASE EVENT DATE: 20251101
